FAERS Safety Report 5261154-0 (Version None)
Quarter: 2007Q1

REPORT INFORMATION
  Report Type: 
  Country: None (occurrence: None)
  Receive Date: 20070309
  Receipt Date: 20070226
  Transmission Date: 20070707
  Serious: Yes (Other)
  Sender: FDA-Public Use
  Company Number: JP-PFIZER INC-2007014845

PATIENT
  Age: 66 Year
  Sex: Male

DRUGS (9)
  1. CARDENALIN [Suspect]
     Route: 048
  2. ALDACTONE [Suspect]
     Dosage: DAILY DOSE:25MG
     Route: 048
  3. TENORMIN [Concomitant]
     Route: 048
  4. ZESTRIL [Concomitant]
     Route: 048
  5. ETHYL ICOSAPENTATE [Concomitant]
     Route: 048
  6. MITIGLINIDE [Concomitant]
     Route: 048
  7. BUFFERIN [Concomitant]
     Route: 048
  8. ALLOPURINOL [Concomitant]
     Route: 048
  9. ROHYPNOL [Concomitant]
     Route: 048

REACTIONS (1)
  - PLATELET COUNT DECREASED [None]
